FAERS Safety Report 24075492 (Version 2)
Quarter: 2024Q3

REPORT INFORMATION
  Report Type: Other
  Country: FR (occurrence: FR)
  Receive Date: 20240710
  Receipt Date: 20240730
  Transmission Date: 20241016
  Serious: Yes (Other)
  Sender: INCYTE
  Company Number: None

PATIENT

DRUGS (12)
  1. RUXOLITINIB [Suspect]
     Active Substance: RUXOLITINIB
     Indication: Polycythaemia vera
     Dosage: 20 MG, QD, 10 MG X 2 / JOUR
     Route: 048
     Dates: start: 202212, end: 202307
  2. RUXOLITINIB [Suspect]
     Active Substance: RUXOLITINIB
     Dosage: 10 MG, QD, 5 MG X 2 / JOUR
     Route: 048
     Dates: start: 202307
  3. HYDREA [Suspect]
     Active Substance: HYDROXYUREA
     Indication: Polycythaemia vera
     Dosage: 1 DOSAGE FORM, QW, 1 G?LULE PAR SEMAINE
     Route: 048
     Dates: start: 202401
  4. HYDREA [Suspect]
     Active Substance: HYDROXYUREA
     Dosage: UNK
     Route: 048
     Dates: start: 2015, end: 202209
  5. ROSUVASTATIN [Concomitant]
     Active Substance: ROSUVASTATIN\ROSUVASTATIN CALCIUM
     Indication: Myocardial ischaemia
     Dosage: UNK (4 CP DE 5MG PAR SEMAINE)
     Route: 048
  6. RAMIPRIL [Concomitant]
     Active Substance: RAMIPRIL
     Indication: Hypertension
     Dosage: 1 DOSAGE FORM, QD, 0.0.15 MG
     Route: 048
  7. LUCENTIS [Concomitant]
     Active Substance: RANIBIZUMAB
     Indication: Age-related macular degeneration
     Dosage: 1 DOSAGE FORM
     Route: 031
  8. DOLIPRANE [Concomitant]
     Active Substance: ACETAMINOPHEN
     Indication: Pain
     Dosage: 3 DOSAGE FORM, QD, 1.1.1 SI BESOIN
     Route: 048
  9. MONOOX [Concomitant]
     Indication: Age-related macular degeneration
     Dosage: UNK,  1,5 MG/0,5 ML, COLLYRE EN SOLUTION EN R?CIPIENT UNIDOSE
     Route: 047
  10. HYALURONATE SODIUM [Concomitant]
     Active Substance: HYALURONATE SODIUM
     Indication: Age-related macular degeneration
     Dosage: UNK
     Route: 047
  11. ELIQUIS [Concomitant]
     Active Substance: APIXABAN
     Indication: Pulmonary embolism
     Dosage: 2 DOSAGE FORM, QD, 1.0.15MG
     Route: 048
  12. AMLODIPINE BESYLATE [Concomitant]
     Active Substance: AMLODIPINE BESYLATE
     Indication: Hypertension
     Dosage: 1 DOSAGE FORM, QD, (0.0.1)
     Route: 048

REACTIONS (2)
  - Basal cell carcinoma [Recovering/Resolving]
  - Cutaneous T-cell lymphoma [Recovering/Resolving]

NARRATIVE: CASE EVENT DATE: 20240402
